FAERS Safety Report 7160057-4 (Version None)
Quarter: 2010Q4

REPORT INFORMATION
  Report Type: 
  Country: None (occurrence: None)
  Receive Date: 20101214
  Receipt Date: 20091123
  Transmission Date: 20110411
  Serious: No
  Sender: FDA-Public Use
  Company Number: US-AMGEN-KDL376306

PATIENT

DRUGS (2)
  1. ENBREL [Suspect]
     Indication: JUVENILE ARTHRITIS
     Dosage: UNK UNK, UNK
  2. METHOTREXATE [Concomitant]
     Dosage: 2.5 MG, QWK
     Route: 048

REACTIONS (2)
  - NASOPHARYNGITIS [None]
  - SINUSITIS [None]
